FAERS Safety Report 7800794-9 (Version None)
Quarter: 2011Q4

REPORT INFORMATION
  Report Type: 
  Country: None (occurrence: None)
  Receive Date: 20111006
  Receipt Date: 20111004
  Transmission Date: 20120403
  Serious: Yes (Hospitalization, Other)
  Sender: FDA-Public Use
  Company Number: CA-AMGEN-CANCT2011023312

PATIENT
  Age: 87 Year
  Sex: Female

DRUGS (1)
  1. ROMIPLOSTIM [Suspect]
     Indication: IDIOPATHIC THROMBOCYTOPENIC PURPURA
     Dosage: 2 MUG/KG, QWK
     Route: 058
     Dates: start: 20091006, end: 20110525

REACTIONS (3)
  - PORTAL VEIN THROMBOSIS [None]
  - DIARRHOEA [None]
  - CLOSTRIDIUM TEST POSITIVE [None]
